FAERS Safety Report 9300216 (Version 2)
Quarter: 2013Q3

REPORT INFORMATION
  Report Type: Spontaneous
  Country: BR (occurrence: BR)
  Receive Date: 20130521
  Receipt Date: 20130725
  Transmission Date: 20140515
  Serious: Yes (Hospitalization, Other)
  Sender: FDA-Public Use
  Company Number: PHHY2013BR050322

PATIENT
  Age: 62 Year
  Sex: Female

DRUGS (3)
  1. FORASEQ [Suspect]
     Indication: BRONCHITIS
     Dosage: 2 DF(1 CAPSULE IN THE MORNING, 1 CAPSULE IN THE AFTERNOON), QD
  2. SERETIDE [Concomitant]
     Dosage: UNK UKN, PRN
  3. BASILIXIMAB [Concomitant]
     Indication: EMPHYSEMA
     Dosage: 1 DF(AFTER BREAKFAST), QD

REACTIONS (3)
  - Allergy to chemicals [Recovered/Resolved]
  - Emphysema [Unknown]
  - Wrong technique in drug usage process [Unknown]
